FAERS Safety Report 5874858-3 (Version None)
Quarter: 2008Q3

REPORT INFORMATION
  Report Type: 
  Country: None (occurrence: None)
  Receive Date: 20080908
  Receipt Date: 20080908
  Transmission Date: 20090109
  Serious: Yes (Other)
  Sender: FDA-Public Use
  Company Number: None

PATIENT
  Age: 13 Year
  Sex: Female
  Weight: 60.1016 kg

DRUGS (2)
  1. SINGULAIR [Suspect]
     Indication: ASTHMA
     Dosage: 10MG ONE DAILY ORAL
     Route: 048
     Dates: start: 20080301, end: 20080801
  2. SINGULAIR [Suspect]
     Indication: RHINITIS ALLERGIC
     Dosage: 10MG ONE DAILY ORAL
     Route: 048
     Dates: start: 20080301, end: 20080801

REACTIONS (2)
  - ANXIETY [None]
  - MORBID THOUGHTS [None]
